FAERS Safety Report 7570079-7 (Version None)
Quarter: 2011Q2

REPORT INFORMATION
  Report Type: 
  Country: None (occurrence: None)
  Receive Date: 20110624
  Receipt Date: 20110609
  Transmission Date: 20111010
  Serious: Yes (Death, Hospitalization)
  Sender: FDA-Public Use
  Company Number: US-RANBAXY-2011RR-45482

PATIENT
  Sex: Male
  Weight: 82 kg

DRUGS (11)
  1. LEVAQUIN [Suspect]
     Indication: NEUTROPENIA
     Dosage: 500 MG, UNK
     Route: 048
     Dates: start: 20000228
  2. LEVAQUIN [Suspect]
     Indication: PRODUCT USED FOR UNKNOWN INDICATION
     Dosage: 500 MG, UNK
     Route: 042
     Dates: start: 20000308
  3. LEVAQUIN [Suspect]
     Dosage: 500 MG, UNK
     Route: 042
     Dates: start: 20000314
  4. LEVAQUIN [Suspect]
     Dosage: 500 MG, UNK
     Route: 048
     Dates: start: 20000302
  5. LEVAQUIN [Suspect]
     Dosage: UNK
  6. LEVAQUIN [Suspect]
     Dosage: 500 MG, UNK
     Route: 042
     Dates: start: 20000310
  7. DEXAMETHASONE [Suspect]
     Indication: PRODUCT USED FOR UNKNOWN INDICATION
     Dosage: 4 MG, UNK
     Route: 065
  8. CEPHALEXIN [Suspect]
     Indication: PRODUCT USED FOR UNKNOWN INDICATION
     Route: 065
  9. LEVAQUIN [Suspect]
     Dosage: 500 MG, UNK
     Route: 042
     Dates: start: 20000309
  10. WESTCORT TOPICAL CREAM [Suspect]
     Indication: PRODUCT USED FOR UNKNOWN INDICATION
     Dosage: 10 MG, UNK
     Route: 065
  11. LEVAQUIN [Suspect]
     Indication: PYREXIA
     Dosage: 500 MG, QD
     Route: 048
     Dates: start: 20090209, end: 20090209

REACTIONS (1)
  - STEVENS-JOHNSON SYNDROME [None]
